FAERS Safety Report 18893116 (Version 1)
Quarter: 2021Q1

REPORT INFORMATION
  Report Type: Spontaneous
  Country: US (occurrence: US)
  Receive Date: 20210215
  Receipt Date: 20210215
  Transmission Date: 20210420
  Serious: No
  Sender: FDA-Public Use
  Company Number: US-BAYER-2021-064155

PATIENT
  Age: 92 Year
  Sex: Male

DRUGS (11)
  1. CHLORPHENIRAMINE MALEATE. [Concomitant]
     Active Substance: CHLORPHENIRAMINE MALEATE
  2. SALBUTAMOL [Concomitant]
     Active Substance: ALBUTEROL
  3. ASPIRIN (CARDIO) [Suspect]
     Active Substance: ASPIRIN
  4. METFORMIN [Concomitant]
     Active Substance: METFORMIN HYDROCHLORIDE
  5. TYLENOL [Concomitant]
     Active Substance: ACETAMINOPHEN
  6. GUAIFENESIN. [Concomitant]
     Active Substance: GUAIFENESIN
  7. DOCUSATE [Concomitant]
     Active Substance: DOCUSATE
  8. SYMBICORT [Concomitant]
     Active Substance: BUDESONIDE\FORMOTEROL FUMARATE DIHYDRATE
     Dosage: UNK UNK, BID
  9. MIRALAX [Suspect]
     Active Substance: POLYETHYLENE GLYCOL 3350
     Indication: GASTROINTESTINAL DISORDER
     Dosage: 1 DF, QD
     Route: 048
  10. INDOMETHACIN [INDOMETACIN SODIUM] [Concomitant]
     Active Substance: INDOMETHACIN SODIUM
  11. OSCAL [CALCIUM CARBONATE] [Concomitant]

REACTIONS (3)
  - Product prescribing issue [None]
  - Incorrect product administration duration [None]
  - Ingrowing nail [None]
